FAERS Safety Report 21730159 (Version 1)
Quarter: 2022Q4

REPORT INFORMATION
  Report Type: Report from Study
  Country: US (occurrence: US)
  Receive Date: 20221214
  Receipt Date: 20221214
  Transmission Date: 20230112
  Serious: No
  Sender: FDA-Public Use
  Company Number: US-ABBVIE-4199706

PATIENT
  Age: 63 Year
  Sex: Female
  Weight: 107 kg

DRUGS (1)
  1. HUMIRA [Suspect]
     Active Substance: ADALIMUMAB
     Indication: Hidradenitis
     Route: 058

REACTIONS (13)
  - Injury [Not Recovered/Not Resolved]
  - Fall [Not Recovered/Not Resolved]
  - Weight decreased [Not Recovered/Not Resolved]
  - Aortic disorder [Unknown]
  - Pain [Unknown]
  - Myalgia [Not Recovered/Not Resolved]
  - Hypophagia [Unknown]
  - Poor quality sleep [Unknown]
  - Unevaluable event [Not Recovered/Not Resolved]
  - Spinal column injury [Not Recovered/Not Resolved]
  - Scoliosis [Unknown]
  - Nerve compression [Unknown]
  - Spinal osteoarthritis [Unknown]

NARRATIVE: CASE EVENT DATE: 20220601
